FAERS Safety Report 6964897-3 (Version None)
Quarter: 2010Q3

REPORT INFORMATION
  Report Type: 
  Country: None (occurrence: None)
  Receive Date: 20100903
  Receipt Date: 20100827
  Transmission Date: 20110219
  Serious: Yes (Hospitalization)
  Sender: FDA-Public Use
  Company Number: TR-ELI_LILLY_AND_COMPANY-TR201008008294

PATIENT
  Age: 31 Year
  Sex: Female

DRUGS (3)
  1. HUMULIN R [Suspect]
     Indication: GESTATIONAL DIABETES
     Route: 058
     Dates: end: 20100723
  2. HUMULIN R [Suspect]
     Dosage: 22 U, EACH EVENING
     Route: 058
     Dates: end: 20100723
  3. HUMULIN N [Suspect]
     Indication: GESTATIONAL DIABETES
     Dosage: 14 U, DAILY (1/D)
     Route: 058
     Dates: end: 20100723

REACTIONS (2)
  - DRUG EXPOSURE DURING PREGNANCY [None]
  - VASCULAR OCCLUSION [None]
